FAERS Safety Report 6057236-6 (Version None)
Quarter: 2009Q1

REPORT INFORMATION
  Report Type: 
  Country: None (occurrence: None)
  Receive Date: 20090129
  Receipt Date: 20080505
  Transmission Date: 20090719
  Serious: No
  Sender: FDA-Public Use
  Company Number: A0727306A

PATIENT
  Age: 49 Year
  Sex: Female

DRUGS (2)
  1. BUPROPION HCL [Suspect]
     Indication: BIPOLAR DISORDER
     Route: 048
     Dates: start: 20070629, end: 20070709
  2. DEPAKOTE [Suspect]
     Indication: BIPOLAR DISORDER
     Dosage: 500MG AT NIGHT
     Route: 048
     Dates: start: 20070615, end: 20070709

REACTIONS (1)
  - DRUG INEFFECTIVE [None]
